FAERS Safety Report 4401441-9 (Version None)
Quarter: 2004Q3

REPORT INFORMATION
  Report Type: 
  Country: None (occurrence: None)
  Receive Date: 20040907
  Receipt Date: 20040506
  Transmission Date: 20050211
  Serious: No
  Sender: FDA-Public Use
  Company Number: US-BRISTOL-MYERS SQUIBB COMPANY-12581492

PATIENT
  Age: 77 Year
  Sex: Male
  Weight: 77 kg

DRUGS (5)
  1. COUMADIN [Suspect]
     Indication: HEART RATE IRREGULAR
     Dosage: DOSAGE: 5MG AND 2.5MG ALTERNATING DAILY REDUCED TO 2.5MG FOR 5 DAYS AND 5MG FOR 2 DAYS
     Route: 048
     Dates: start: 20010101
  2. PLAVIX [Suspect]
     Indication: STENT PLACEMENT
     Route: 048
     Dates: start: 20040201
  3. LIPITOR [Concomitant]
     Dates: start: 20040201
  4. CALAN [Concomitant]
     Dosage: DURATION: ^FOR YEARS^
  5. ASPIRIN [Concomitant]

REACTIONS (1)
  - EPISTAXIS [None]
